FAERS Safety Report 9304943 (Version 2)
Quarter: 2013Q2

REPORT INFORMATION
  Report Type: Spontaneous
  Country: US (occurrence: None)
  Receive Date: 20130521
  Receipt Date: 20130530
  Transmission Date: 20140414
  Serious: Yes (Other)
  Sender: FDA-Public Use
  Company Number: 2013P1005684

PATIENT
  Age: 16 Year
  Sex: Male

DRUGS (1)
  1. MYORISAN [Suspect]
     Indication: ACNE CYSTIC
     Route: 048
     Dates: start: 20130109, end: 20130507

REACTIONS (2)
  - Depression [None]
  - Hypersomnia [None]
